FAERS Safety Report 7138888-6 (Version None)
Quarter: 2010Q4

REPORT INFORMATION
  Report Type: 
  Country: None (occurrence: None)
  Receive Date: 20101206
  Receipt Date: 20100106
  Transmission Date: 20110411
  Serious: No
  Sender: FDA-Public Use
  Company Number: US-ABBOTT-10P-163-0618568-00

PATIENT
  Age: 11 Month
  Sex: Female

DRUGS (1)
  1. OMNICEF [Suspect]
     Indication: EAR INFECTION
     Dates: start: 20100104, end: 20100105

REACTIONS (1)
  - HAEMATOCHEZIA [None]
